FAERS Safety Report 8287200-8 (Version None)
Quarter: 2012Q2

REPORT INFORMATION
  Report Type: 
  Country: None (occurrence: None)
  Receive Date: 20120416
  Receipt Date: 20120402
  Transmission Date: 20120825
  Serious: Yes (Other)
  Sender: FDA-Public Use
  Company Number: JP-ROCHE-1057438

PATIENT
  Weight: 48 kg

DRUGS (9)
  1. CARBOPLATIN [Suspect]
     Indication: LUNG ADENOCARCINOMA METASTATIC
     Route: 041
     Dates: start: 20110823, end: 20110921
  2. ALIMTA [Suspect]
     Indication: LUNG ADENOCARCINOMA METASTATIC
     Route: 041
     Dates: start: 20110823, end: 20110921
  3. ADVAIR DISKUS 100/50 [Concomitant]
     Indication: ASTHMA
     Route: 055
     Dates: start: 20110804
  4. AVASTIN [Suspect]
     Route: 041
     Dates: start: 20111026, end: 20120111
  5. PANVITAN [Concomitant]
     Indication: PROPHYLAXIS
     Route: 048
     Dates: start: 20110812, end: 20120130
  6. ALIMTA [Suspect]
     Route: 041
     Dates: start: 20111026, end: 20120111
  7. SPIRIVA [Concomitant]
     Indication: CHRONIC OBSTRUCTIVE PULMONARY DISEASE
     Route: 055
     Dates: start: 20110804
  8. AVASTIN [Suspect]
     Indication: LUNG ADENOCARCINOMA METASTATIC
     Route: 041
     Dates: start: 20110823, end: 20110921
  9. CARBOPLATIN [Suspect]
     Route: 041
     Dates: start: 20111026, end: 20120111

REACTIONS (1)
  - PNEUMONIA [None]
